FAERS Safety Report 19309740 (Version 1)
Quarter: 2021Q2

REPORT INFORMATION
  Report Type: Spontaneous
  Country: US (occurrence: US)
  Receive Date: 20210526
  Receipt Date: 20210526
  Transmission Date: 20210717
  Serious: No
  Sender: FDA-Public Use
  Company Number: US-GLENMARK PHARMACEUTICALS-2020GMK049087

PATIENT

DRUGS (2)
  1. OLMESARTAN MEDOXOMIL TABLETS, 20MG [Suspect]
     Active Substance: OLMESARTAN MEDOXOMIL
     Indication: HYPERTENSION
     Dosage: 10 MILLIGRAM, OD (HALF TABLET ONCE A DAY)
     Route: 048
     Dates: start: 202001
  2. OLMESARTAN MEDOXOMIL TABLETS, 20MG [Suspect]
     Active Substance: OLMESARTAN MEDOXOMIL
     Dosage: UNK
     Route: 065
     Dates: start: 202006

REACTIONS (4)
  - Wrong technique in product usage process [Unknown]
  - Product quality issue [Unknown]
  - Product size issue [Unknown]
  - Hypotension [Recovered/Resolved]

NARRATIVE: CASE EVENT DATE: 202001
